FAERS Safety Report 24857313 (Version 3)
Quarter: 2025Q1

REPORT INFORMATION
  Report Type: Spontaneous
  Country: ES (occurrence: ES)
  Receive Date: 20250117
  Receipt Date: 20250320
  Transmission Date: 20250409
  Serious: Yes (Hospitalization, Other)
  Sender: MYLAN
  Company Number: ES-JNJFOC-20241220238

PATIENT
  Age: 60 Year
  Sex: Male

DRUGS (7)
  1. METHYLPHENIDATE [Suspect]
     Active Substance: METHYLPHENIDATE
     Indication: Parkinson^s disease
  2. HALOPERIDOL [Suspect]
     Active Substance: HALOPERIDOL
     Indication: Product used for unknown indication
  3. CARBIDOPA\LEVODOPA [Suspect]
     Active Substance: CARBIDOPA\LEVODOPA
     Indication: Parkinson^s disease
  4. MAPROTILINE [Concomitant]
     Active Substance: MAPROTILINE
     Indication: Parkinson^s disease
  5. MAPROTILINE [Concomitant]
     Active Substance: MAPROTILINE
     Indication: Depression
  6. MIRTAZAPINE [Concomitant]
     Active Substance: MIRTAZAPINE
     Indication: Parkinson^s disease
  7. MIRTAZAPINE [Concomitant]
     Active Substance: MIRTAZAPINE
     Indication: Depression

REACTIONS (3)
  - Hallucination, visual [Unknown]
  - Neuroleptic malignant syndrome [Recovering/Resolving]
  - Off label use [Recovered/Resolved]
